FAERS Safety Report 17360556 (Version 1)
Quarter: 2020Q1

REPORT INFORMATION
  Report Type: Spontaneous
  Country: DE (occurrence: DE)
  Receive Date: 20200203
  Receipt Date: 20200203
  Transmission Date: 20200409
  Serious: Yes (Other)
  Sender: FDA-Public Use
  Company Number: NVSC2020DE021000

PATIENT
  Age: 0 Day
  Sex: Female
  Weight: 2.5 kg

DRUGS (5)
  1. MONTELUKAST [Suspect]
     Active Substance: MONTELUKAST SODIUM
     Indication: FOETAL EXPOSURE DURING PREGNANCY
     Dosage: 10 MG, QD (0 - 39.2 GESTATIONAL WEEK)
     Route: 064
     Dates: start: 20171201, end: 20180902
  2. VOMEX A [Concomitant]
     Active Substance: DIMENHYDRINATE
     Indication: FOETAL EXPOSURE DURING PREGNANCY
     Dosage: 150 MG, QD (12 - 39.2 GESTATIONAL WEEK)
     Route: 064
  3. FOSTER [Suspect]
     Active Substance: BECLOMETHASONE\FORMOTEROL
     Indication: FOETAL EXPOSURE DURING PREGNANCY
     Dosage: 6 UG, QD (100 [?G/D ] / 6 [?G/D ]) (0 - 39.2 GESTATIONAL WEEK)
     Route: 064
     Dates: start: 20171201, end: 20180902
  4. SERTRALINE [Suspect]
     Active Substance: SERTRALINE HYDROCHLORIDE
     Indication: FOETAL EXPOSURE DURING PREGNANCY
     Dosage: 100 MG, QD (0 - 39.2 GESTATIONAL WEEK)
     Route: 064
     Dates: start: 20171201, end: 20180902
  5. PANTOPRAZOL [Concomitant]
     Active Substance: PANTOPRAZOLE SODIUM
     Indication: FOETAL EXPOSURE DURING PREGNANCY
     Dosage: 40 MG, QD (IF REQUIRED) (8 - 10 GESTATIONAL WEEK)
     Route: 064

REACTIONS (2)
  - Small for dates baby [Recovering/Resolving]
  - Foetal exposure during pregnancy [Unknown]

NARRATIVE: CASE EVENT DATE: 20180902
